FAERS Safety Report 12763975 (Version 1)
Quarter: 2016Q3

REPORT INFORMATION
  Report Type: Spontaneous
  Country: US (occurrence: US)
  Receive Date: 20160920
  Receipt Date: 20160920
  Transmission Date: 20161109
  Serious: Yes (Hospitalization, Other)
  Sender: FDA-Public Use
  Company Number: US-009507513-1112USA03035

PATIENT
  Sex: Female
  Weight: 65.77 kg

DRUGS (3)
  1. BONIVA [Suspect]
     Active Substance: IBANDRONATE SODIUM
     Indication: OSTEOPOROSIS
     Dosage: 150 MG, UNK
     Route: 048
     Dates: start: 20050928, end: 20051027
  2. FOSAMAX [Suspect]
     Active Substance: ALENDRONATE SODIUM
     Indication: OSTEOPOROSIS
     Dosage: 10 MG, QD
     Route: 048
     Dates: start: 19990910
  3. FOSAMAX [Suspect]
     Active Substance: ALENDRONATE SODIUM
     Dosage: 70 MG, QW
     Route: 048
     Dates: start: 200306, end: 200603

REACTIONS (55)
  - Respiratory disorder [Unknown]
  - Intervertebral disc degeneration [Unknown]
  - Synovitis [Unknown]
  - Osteoarthritis [Unknown]
  - Deafness [Unknown]
  - Malaise [Unknown]
  - Bronchospasm [Unknown]
  - Open angle glaucoma [Unknown]
  - Pain in extremity [Not Recovered/Not Resolved]
  - Angiosarcoma [Unknown]
  - Synovitis [Unknown]
  - Spinal column stenosis [Unknown]
  - Trigger finger [Unknown]
  - Tooth infection [Unknown]
  - Cough [Unknown]
  - Osteoarthritis [Not Recovered/Not Resolved]
  - Arthritis infective [Unknown]
  - Intervertebral disc protrusion [Unknown]
  - Nodule [Unknown]
  - Adverse drug reaction [Unknown]
  - Cough [Unknown]
  - Tooth infection [Unknown]
  - Osteonecrosis [Unknown]
  - Myofascial pain syndrome [Unknown]
  - Haemorrhoids [Unknown]
  - Cerumen impaction [Unknown]
  - Bone lesion [Unknown]
  - Depression [Not Recovered/Not Resolved]
  - Bursitis [Unknown]
  - Tooth disorder [Unknown]
  - Adverse drug reaction [Unknown]
  - Arthropathy [Unknown]
  - Osteoarthritis [Not Recovered/Not Resolved]
  - Anxiety [Unknown]
  - Vertebral foraminal stenosis [Unknown]
  - Spinal cord compression [Unknown]
  - Mucous membrane disorder [Unknown]
  - Hypersensitivity [Unknown]
  - Overweight [Unknown]
  - Foot deformity [Unknown]
  - Rectal haemorrhage [Unknown]
  - Drug ineffective [Unknown]
  - Gingival recession [Not Recovered/Not Resolved]
  - Scoliosis [Unknown]
  - Epicondylitis [Unknown]
  - Tooth infection [Unknown]
  - Tooth fracture [Unknown]
  - Asthma [Unknown]
  - Foot deformity [Unknown]
  - Dyspepsia [Unknown]
  - Iron deficiency anaemia [Unknown]
  - Diverticulum [Unknown]
  - Pneumonia [Unknown]
  - Vitamin D deficiency [Unknown]
  - Chondrosarcoma [Not Recovered/Not Resolved]

NARRATIVE: CASE EVENT DATE: 2000
